FAERS Safety Report 6236280-X (Version None)
Quarter: 2009Q2

REPORT INFORMATION
  Report Type: 
  Country: None (occurrence: None)
  Receive Date: 20090619
  Receipt Date: 20090609
  Transmission Date: 20091009
  Serious: Yes (Other)
  Sender: FDA-Public Use
  Company Number: US-PFIZER INC-2009225629

PATIENT
  Sex: Male

DRUGS (2)
  1. ZYVOX [Suspect]
     Indication: DIABETIC FOOT INFECTION
     Dosage: 600 MG, 2X/DAY
     Route: 048
     Dates: start: 20090101, end: 20090101
  2. LEVOFLOXACIN [Suspect]

REACTIONS (3)
  - COGNITIVE DISORDER [None]
  - HALLUCINATION [None]
  - MALAISE [None]
